FAERS Safety Report 7622540-4 (Version None)
Quarter: 2011Q3

REPORT INFORMATION
  Report Type: 
  Country: None (occurrence: None)
  Receive Date: 20110712
  Receipt Date: 20110708
  Transmission Date: 20111222
  Serious: Yes (Death, Other)
  Sender: FDA-Public Use
  Company Number: 2011SP031818

PATIENT
  Age: 49 Year
  Sex: Female
  Weight: 48.1 kg

DRUGS (24)
  1. FULCALIQ 2 (MIXED AMINO ACID / CARBOHYDRATE / ELECTROLYTE / VITAMIN CO [Concomitant]
  2. CELECOXIB [Concomitant]
  3. TEMODAL [Suspect]
     Indication: GLIOBLASTOMA MULTIFORME
     Dosage: ; PO, 75 MG/M2; QD; INDRP, 150 MG/M2; QD; INDRP
     Route: 041
     Dates: start: 20110112, end: 20110117
  4. TEMODAL [Suspect]
     Indication: GLIOBLASTOMA MULTIFORME
     Dosage: ; PO, 75 MG/M2; QD; INDRP, 150 MG/M2; QD; INDRP
     Route: 041
     Dates: start: 20101026, end: 20101028
  5. TEMODAL [Suspect]
     Indication: GLIOBLASTOMA MULTIFORME
     Dosage: ; PO, 75 MG/M2; QD; INDRP, 150 MG/M2; QD; INDRP
     Route: 041
     Dates: start: 20101102, end: 20101213
  6. STRONGER NEO MINOPHAGEN C (GLYCYRRHIZIN/GLYCINE/CYSTEINE COMBINED DRUG [Concomitant]
  7. GLYCEOL (CONCENTRATED GLYCERIN / FRUCTOSE) [Concomitant]
  8. GRANISETRON [Concomitant]
  9. VOLTAREN [Concomitant]
  10. URSO 250 [Concomitant]
  11. SODIUM CHLORIDE [Concomitant]
  12. BFLUID (MIXED AMINO ACID/CARBOHYDRATE/ELECTROLYTE/VITAMIN COMBINED DRU [Concomitant]
  13. SOLITAX-H (MAINTENANCE MEDIUM WITH GLUCOSE) [Concomitant]
  14. MAC AMIN (MIXED AMINO ACID/GLYCERIN COMBINED DRUG) [Concomitant]
  15. SEFIROM [Concomitant]
  16. SEFMAZON [Concomitant]
  17. GASDOCK [Concomitant]
  18. FULCALIQ 1 (MIXED AMINO ACID / CARBOHYDRATE / ELECTROLYTE / VITAMIN CO [Concomitant]
  19. DECADRON [Concomitant]
  20. NEOLAMIN 3B (THIAMINE DISULFIDE/B6/B12 COMBINED DRUG) [Concomitant]
  21. LEXIN [Concomitant]
  22. PENTAGIN /00052103/ [Concomitant]
  23. ATELEC [Concomitant]
  24. GASMOTIN [Concomitant]

REACTIONS (9)
  - SURGICAL PROCEDURE REPEATED [None]
  - GLIOBLASTOMA MULTIFORME [None]
  - HAEMORRHAGIC EROSIVE GASTRITIS [None]
  - STRESS ULCER [None]
  - BLOOD PRESSURE INCREASED [None]
  - MENINGEAL DISORDER [None]
  - NEOPLASM PROGRESSION [None]
  - PNEUMONIA [None]
  - GENERAL PHYSICAL CONDITION ABNORMAL [None]
